FAERS Safety Report 23936218 (Version 1)
Quarter: 2024Q2

REPORT INFORMATION
  Report Type: Spontaneous
  Country: US (occurrence: US)
  Receive Date: 20240604
  Receipt Date: 20240604
  Transmission Date: 20240716
  Serious: No
  Sender: FDA-Public Use
  Company Number: US-AMGEN-USASP2024108163

PATIENT
  Age: 66 Year
  Sex: Female

DRUGS (2)
  1. TEPEZZA [Suspect]
     Active Substance: TEPROTUMUMAB-TRBW
     Indication: Toxic goitre
     Dosage: 640 MILLIGRAM, FIRST INFUSION
     Route: 042
     Dates: start: 20240214
  2. TEPEZZA [Suspect]
     Active Substance: TEPROTUMUMAB-TRBW
     Dosage: 1280 MILLIGRAM, Q3WK
     Route: 042
     Dates: end: 20240529

REACTIONS (5)
  - Ear dryness [Recovering/Resolving]
  - Dry mouth [Recovering/Resolving]
  - Palpitations [Recovering/Resolving]
  - Dry throat [Recovering/Resolving]
  - Blood glucose increased [Recovering/Resolving]

NARRATIVE: CASE EVENT DATE: 20240101
